FAERS Safety Report 6287694-3 (Version None)
Quarter: 2009Q3

REPORT INFORMATION
  Report Type: 
  Country: None (occurrence: None)
  Receive Date: 20090717
  Receipt Date: 20080630
  Transmission Date: 20100115
  Serious: Yes (Hospitalization)
  Sender: FDA-Public Use
  Company Number: 2008SP013002

PATIENT
  Weight: 125 kg

DRUGS (1)
  1. INTEGRILIN [Suspect]
     Indication: DRUG USE FOR UNKNOWN INDICATION
     Dosage: 2 MG
     Dates: start: 20080601, end: 20080601

REACTIONS (2)
  - GASTROINTESTINAL HAEMORRHAGE [None]
  - UNDERDOSE [None]
